FAERS Safety Report 5543591-X (Version None)
Quarter: 2007Q4

REPORT INFORMATION
  Report Type: 
  Country: None (occurrence: None)
  Receive Date: 20071210
  Receipt Date: 20061109
  Transmission Date: 20080405
  Serious: No
  Sender: FDA-Public Use
  Company Number: US-AMGEN-KDL180582

PATIENT
  Sex: Male

DRUGS (2)
  1. ENBREL [Suspect]
     Indication: PSORIASIS
     Route: 058
     Dates: start: 20050601
  2. SORIATANE [Concomitant]
     Route: 048
     Dates: start: 20060516

REACTIONS (6)
  - CONDITION AGGRAVATED [None]
  - DRY EYE [None]
  - FEELING COLD [None]
  - NEUROPATHY PERIPHERAL [None]
  - PARAESTHESIA [None]
  - PSORIASIS [None]
